FAERS Safety Report 6802634-3 (Version None)
Quarter: 2010Q2

REPORT INFORMATION
  Report Type: 
  Country: None (occurrence: None)
  Receive Date: 20100628
  Receipt Date: 20100614
  Transmission Date: 20101027
  Serious: Yes (Hospitalization, Other)
  Sender: FDA-Public Use
  Company Number: PHHY2010BR39388

PATIENT
  Age: 47 Year
  Sex: Female

DRUGS (4)
  1. EXFORGE [Suspect]
     Indication: HYPERTENSION
     Dosage: ONE TABLET (320/5 MG) DAILY
     Route: 048
  2. TRAMADOL HCL [Concomitant]
     Dosage: 1 TABLET DAILY
  3. ACETAMINOPHEN [Concomitant]
     Dosage: 1 TABLET DAILY
  4. CITALOPRAM [Concomitant]
     Indication: DEPRESSION
     Dosage: 1 TABLET DAILY

REACTIONS (4)
  - ABDOMINAL PAIN [None]
  - DRUG TOXICITY [None]
  - SCIATICA [None]
  - VOMITING [None]
